FAERS Safety Report 13278108 (Version 1)
Quarter: 2017Q1

REPORT INFORMATION
  Report Type: Spontaneous
  Country: US (occurrence: US)
  Receive Date: 20170228
  Receipt Date: 20170228
  Transmission Date: 20170428
  Serious: No
  Sender: FDA-Public Use
  Company Number: US-PFIZER INC-2017088052

PATIENT
  Age: 21 Year
  Sex: Female

DRUGS (2)
  1. ADDERALL [Concomitant]
     Active Substance: AMPHETAMINE ASPARTATE\AMPHETAMINE SULFATE\DEXTROAMPHETAMINE SACCHARATE\DEXTROAMPHETAMINE SULFATE
     Indication: ATTENTION DEFICIT/HYPERACTIVITY DISORDER
     Dosage: UNK
     Dates: start: 2014
  2. EFFEXOR XR [Suspect]
     Active Substance: VENLAFAXINE HYDROCHLORIDE
     Dosage: UNK
     Dates: start: 201701

REACTIONS (7)
  - Heart rate increased [Unknown]
  - Dizziness [Unknown]
  - Disturbance in attention [Unknown]
  - Disorientation [Unknown]
  - Energy increased [Unknown]
  - Mania [Unknown]
  - Memory impairment [Unknown]

NARRATIVE: CASE EVENT DATE: 201702
